FAERS Safety Report 5511582-0 (Version None)
Quarter: 2007Q4

REPORT INFORMATION
  Report Type: 
  Country: None (occurrence: None)
  Receive Date: 20071109
  Receipt Date: 20071031
  Transmission Date: 20080405
  Serious: Yes (Other)
  Sender: FDA-Public Use
  Company Number: JP-SANOFI-SYNTHELABO-A01200712536

PATIENT
  Age: 67 Year
  Sex: Male

DRUGS (4)
  1. CALCIUM LEVOFOLINATE [Concomitant]
     Route: 041
     Dates: start: 20071023, end: 20071023
  2. FLUOROURACIL [Concomitant]
     Route: 040
     Dates: start: 20070820, end: 20070820
  3. FLUOROURACIL [Concomitant]
     Route: 041
     Dates: start: 20070820, end: 20070821
  4. OXALIPLATIN [Suspect]
     Indication: LARGE INTESTINE CARCINOMA
     Route: 041
     Dates: start: 20071023, end: 20071023

REACTIONS (1)
  - CYANOSIS [None]
